FAERS Safety Report 6759279-3 (Version None)
Quarter: 2010Q2

REPORT INFORMATION
  Report Type: 
  Country: None (occurrence: None)
  Receive Date: 20100607
  Receipt Date: 20100526
  Transmission Date: 20101027
  Serious: Yes (Other)
  Sender: FDA-Public Use
  Company Number: NO-PFIZER INC-2010065955

PATIENT
  Sex: Female

DRUGS (1)
  1. RELPAX [Suspect]

REACTIONS (7)
  - ACCIDENTAL DRUG INTAKE BY CHILD [None]
  - FATIGUE [None]
  - MUSCLE TWITCHING [None]
  - MYDRIASIS [None]
  - NAUSEA [None]
  - SOMNOLENCE [None]
  - VOMITING [None]
